FAERS Safety Report 8530753-2 (Version None)
Quarter: 2012Q2

REPORT INFORMATION
  Report Type: 
  Country: None (occurrence: None)
  Receive Date: 20120411
  Receipt Date: 20120130
  Transmission Date: 20120825
  Serious: No
  Sender: FDA-Public Use
  Company Number: PHEH2012US002562

PATIENT
  Sex: Female

DRUGS (1)
  1. ILARIS [Suspect]
     Indication: FAMILIAL COLD AUTOINFLAMMATORY SYNDROME
     Dosage: 150 MG, Q8W, SUBCUTANEOUS
     Route: 058
     Dates: start: 20111001

REACTIONS (1)
  - HOSPITALISATION [None]
